FAERS Safety Report 8901854 (Version 1)
Quarter: 2012Q4

REPORT INFORMATION
  Report Type: Spontaneous
  Country: US (occurrence: None)
  Receive Date: 20121109
  Receipt Date: 20121109
  Transmission Date: 20130627
  Serious: Yes (Hospitalization)
  Sender: FDA-Public Use
  Company Number: None

PATIENT
  Age: 35 Year
  Sex: Female
  Weight: 95.26 kg

DRUGS (1)
  1. OVRAL-28 [Suspect]
     Indication: BIRTH CONTROL
     Dosage: 1 tablet daily po
     Dates: start: 20120901, end: 20121107

REACTIONS (1)
  - Pulmonary embolism [None]
